FAERS Safety Report 9289285 (Version 2)
Quarter: 2013Q2

REPORT INFORMATION
  Report Type: Report from Study
  Country: US (occurrence: US)
  Receive Date: 20130514
  Receipt Date: 20130523
  Transmission Date: 20140414
  Serious: Yes (Hospitalization, Other)
  Sender: FDA-Public Use
  Company Number: US-ABBOTT-13P-163-1088546-00

PATIENT
  Age: 13 Year
  Sex: Male
  Weight: 41 kg

DRUGS (6)
  1. HUMIRA [Suspect]
     Indication: INFLAMMATORY BOWEL DISEASE
     Route: 058
     Dates: start: 201206
  2. HUMIRA [Suspect]
     Route: 058
     Dates: end: 201304
  3. METHOTREXATE [Suspect]
     Indication: INFLAMMATORY BOWEL DISEASE
  4. PREDNISONE [Suspect]
     Indication: INFLAMMATORY BOWEL DISEASE
     Dosage: BEING WEANED
     Dates: start: 201207
  5. IRON [Concomitant]
     Indication: PRODUCT USED FOR UNKNOWN INDICATION
  6. MULTIVITAMIN [Concomitant]
     Indication: PRODUCT USED FOR UNKNOWN INDICATION

REACTIONS (6)
  - Failure to thrive [Unknown]
  - Colectomy [Unknown]
  - Off label use [Unknown]
  - Inflammation of wound [Unknown]
  - Pyrexia [Unknown]
  - Drug ineffective [Unknown]
